FAERS Safety Report 12357600 (Version 1)
Quarter: 2016Q2

REPORT INFORMATION
  Report Type: Report from Study
  Country: CN (occurrence: CN)
  Receive Date: 20160512
  Receipt Date: 20160512
  Transmission Date: 20160815
  Serious: Yes (Hospitalization)
  Sender: FDA-Public Use
  Company Number: CN-ROCHE-1744080

PATIENT
  Age: 12 Year
  Sex: Female

DRUGS (3)
  1. RITUXIMAB [Suspect]
     Active Substance: RITUXIMAB
     Indication: ENCEPHALITIS
     Route: 042
  2. IVIG [Suspect]
     Active Substance: HUMAN IMMUNOGLOBULIN G
     Indication: ENCEPHALITIS
     Route: 065
  3. MEROPENEM. [Concomitant]
     Active Substance: MEROPENEM
     Route: 042

REACTIONS (3)
  - Dermatitis allergic [Unknown]
  - Urinary tract infection [Unknown]
  - Off label use [Unknown]
